FAERS Safety Report 7425453-6 (Version None)
Quarter: 2011Q2

REPORT INFORMATION
  Report Type: 
  Country: None (occurrence: None)
  Receive Date: 20110420
  Receipt Date: 20110411
  Transmission Date: 20111010
  Serious: No
  Sender: FDA-Public Use
  Company Number: US-ROXANE LABORATORIES, INC.-2011-RO-00514RO

PATIENT
  Sex: Female

DRUGS (2)
  1. MEFLOQUINE HYDROCHLORIDE [Suspect]
     Indication: MALARIA PROPHYLAXIS
     Route: 048
  2. LEXAPRO [Concomitant]
     Indication: DEPRESSION
     Dosage: 20 MG

REACTIONS (9)
  - DECREASED INTEREST [None]
  - TEARFULNESS [None]
  - DEPRESSIVE SYMPTOM [None]
  - LIBIDO DECREASED [None]
  - DISTURBANCE IN ATTENTION [None]
  - INSOMNIA [None]
  - CHILLS [None]
  - ANXIETY [None]
  - ASTHENIA [None]
